FAERS Safety Report 18017731 (Version 5)
Quarter: 2020Q4

REPORT INFORMATION
  Report Type: Report from Study
  Country: PL (occurrence: PL)
  Receive Date: 20200714
  Receipt Date: 20201121
  Transmission Date: 20210113
  Serious: Yes (Death)
  Sender: FDA-Public Use
  Company Number: PL-ROCHE-2640719

PATIENT
  Age: 77 Year
  Sex: Male
  Weight: 58 kg

DRUGS (13)
  1. POLPRIL [Concomitant]
     Active Substance: RAMIPRIL
  2. EUTHYROX [Concomitant]
     Active Substance: LEVOTHYROXINE SODIUM
  3. ATROX (POLAND) [Concomitant]
  4. XL184 [Suspect]
     Active Substance: CABOZANTINIB
     Indication: HEPATOCELLULAR CARCINOMA
     Dosage: ON 02/JUL/2020, HE RECEIVED MOST RECENT DOSE OF CARBOPLATIN 40 MG PRIOR TO EVENT.
     Route: 048
     Dates: start: 20200616
  5. HUMALOG [Concomitant]
     Active Substance: INSULIN LISPRO
  6. ACARD [Concomitant]
     Active Substance: ASPIRIN
  7. PANTOPRAZOL [Concomitant]
     Active Substance: PANTOPRAZOLE SODIUM
  8. ATEZOLIZUMAB. [Suspect]
     Active Substance: ATEZOLIZUMAB
     Indication: HEPATOCELLULAR CARCINOMA
     Dosage: ON 16/JUN/2020, HE RECEIVED MOST RECENT DOSE OF ATEZOLIZUMAB 1200 MG PRIOR TO EVENT.
     Route: 042
     Dates: start: 20200616
  9. AMLOZEK [Concomitant]
     Active Substance: AMLODIPINE BESYLATE
  10. ADATAM [Concomitant]
  11. SPIRONOLACTONE. [Concomitant]
     Active Substance: SPIRONOLACTONE
  12. FUROSEMIDE. [Concomitant]
     Active Substance: FUROSEMIDE
  13. LACTULOSUM [Concomitant]

REACTIONS (1)
  - Hepatic failure [Fatal]

NARRATIVE: CASE EVENT DATE: 20200701
